FAERS Safety Report 11429884 (Version 1)
Quarter: 2015Q3

REPORT INFORMATION
  Report Type: Spontaneous
  Country: US (occurrence: US)
  Receive Date: 20150828
  Receipt Date: 20150828
  Transmission Date: 20151125
  Serious: No
  Sender: FDA-Public Use
  Company Number: US-ROCHE-1180686

PATIENT
  Sex: Female

DRUGS (5)
  1. OMEPRAZOLE. [Concomitant]
     Active Substance: OMEPRAZOLE
     Indication: GASTROOESOPHAGEAL REFLUX DISEASE
     Route: 048
  2. CITALOPRAM [Concomitant]
     Active Substance: CITALOPRAM HYDROBROMIDE
     Indication: DEPRESSION
     Route: 048
  3. PEGASYS [Suspect]
     Active Substance: PEGINTERFERON ALFA-2A
     Indication: CHRONIC HEPATITIS C
     Route: 058
     Dates: start: 20130113
  4. RIBASPHERE [Suspect]
     Active Substance: RIBAVIRIN
     Indication: CHRONIC HEPATITIS C
     Dosage: IN DIVIDED DOSES 400/400
     Route: 065
     Dates: start: 20130113
  5. TRAMADOL. [Concomitant]
     Active Substance: TRAMADOL
     Indication: PAIN
     Route: 048

REACTIONS (30)
  - Rhinorrhoea [Unknown]
  - Insomnia [Unknown]
  - Pruritus [Unknown]
  - Gait disturbance [Unknown]
  - Drug dose omission [Unknown]
  - Lower respiratory tract infection [Unknown]
  - Abnormal dreams [Unknown]
  - Erythema [Unknown]
  - Weight decreased [Unknown]
  - Hyperacusis [Unknown]
  - Feeling jittery [Unknown]
  - Hyperhidrosis [Unknown]
  - Muscle spasms [Unknown]
  - Skin disorder [Unknown]
  - Proctalgia [Unknown]
  - Dyspnoea [Unknown]
  - Diarrhoea [Unknown]
  - Dysgeusia [Unknown]
  - Anger [Unknown]
  - Urine output decreased [Unknown]
  - Pain [Unknown]
  - Memory impairment [Unknown]
  - Malaise [Unknown]
  - Palpitations [Unknown]
  - Decreased appetite [Unknown]
  - Disturbance in attention [Unknown]
  - Fatigue [Unknown]
  - Chromaturia [Unknown]
  - Dizziness [Unknown]
  - Constipation [Unknown]
